FAERS Safety Report 15700103 (Version 1)
Quarter: 2018Q4

REPORT INFORMATION
  Report Type: Spontaneous
  Country: US (occurrence: LS)
  Receive Date: 20181207
  Receipt Date: 20181207
  Transmission Date: 20190205
  Serious: Yes (Hospitalization)
  Sender: FDA-Public Use
  Company Number: LS-STI PHARMA LLC-2059825

PATIENT
  Age: 71 Year
  Sex: Male
  Weight: 53.14 kg

DRUGS (3)
  1. LEVOFLOXACIN. [Suspect]
     Active Substance: LEVOFLOXACIN
     Route: 048
     Dates: start: 20171107, end: 20181103
  2. DELAMINID [Suspect]
     Active Substance: DELAMANID
     Route: 048
     Dates: start: 20171107, end: 20180618
  3. ETHAMBUTOL HYDROCHLORIDE. [Suspect]
     Active Substance: ETHAMBUTOL HYDROCHLORIDE
     Dates: start: 20180618, end: 20181103

REACTIONS (6)
  - Blood creatinine increased [Unknown]
  - Chronic obstructive pulmonary disease [Unknown]
  - Hypertension [Unknown]
  - Incorrect product administration duration [Unknown]
  - Hypothyroidism [Unknown]
  - Haemoglobin decreased [Unknown]

NARRATIVE: CASE EVENT DATE: 20181103
